FAERS Safety Report 13909233 (Version 1)
Quarter: 2017Q3

REPORT INFORMATION
  Report Type: Spontaneous
  Country: GB (occurrence: GB)
  Receive Date: 20170828
  Receipt Date: 20170828
  Transmission Date: 20171127
  Serious: Yes (Other)
  Sender: FDA-Public Use
  Company Number: GB-ACCORD-057562

PATIENT
  Age: 65 Year
  Sex: Female
  Weight: 69.39 kg

DRUGS (3)
  1. SIMVASTATIN. [Concomitant]
     Active Substance: SIMVASTATIN
  2. ENALAPRIL [Concomitant]
     Active Substance: ENALAPRIL
  3. AMLODIPINE [Suspect]
     Active Substance: AMLODIPINE BESYLATE
     Indication: HYPERTENSION
     Route: 048
     Dates: start: 20161031, end: 20170609

REACTIONS (2)
  - Eye pain [Recovered/Resolved]
  - Conjunctival deposit [Recovered/Resolved]

NARRATIVE: CASE EVENT DATE: 20161105
